FAERS Safety Report 15849389 (Version 1)
Quarter: 2019Q1

REPORT INFORMATION
  Report Type: Spontaneous
  Country: BR (occurrence: BR)
  Receive Date: 20190121
  Receipt Date: 20190121
  Transmission Date: 20190417
  Serious: Yes (Other)
  Sender: FDA-Public Use
  Company Number: BR-SA-2018SA387775

PATIENT
  Sex: Female

DRUGS (1)
  1. CLEXANE [Suspect]
     Active Substance: ENOXAPARIN SODIUM
     Indication: HYPERCOAGULATION
     Dosage: 40 MG, UNK
     Route: 065

REACTIONS (4)
  - Haemorrhage [Unknown]
  - Exposure during pregnancy [Unknown]
  - Placenta praevia [Unknown]
  - Product use issue [Unknown]
